FAERS Safety Report 9163210 (Version 4)
Quarter: 2013Q2

REPORT INFORMATION
  Report Type: Report from Study
  Country: CH (occurrence: CH)
  Receive Date: 20130314
  Receipt Date: 20130418
  Transmission Date: 20140414
  Serious: Yes (Hospitalization)
  Sender: FDA-Public Use
  Company Number: CH-BAYER-2013-022874

PATIENT
  Age: 76 Year
  Sex: Male
  Weight: 82.6 kg

DRUGS (13)
  1. REGORAFENIB [Suspect]
     Indication: COLON CANCER
     Dosage: DAILY DOSE 160 MG
     Route: 048
     Dates: start: 20130207, end: 20130219
  2. REGORAFENIB [Suspect]
     Indication: COLON CANCER
     Dosage: 120 MG, QD
     Route: 048
     Dates: start: 20130308, end: 20130328
  3. REGORAFENIB [Suspect]
     Indication: COLON CANCER
     Dosage: UNK
     Dates: start: 20130405
  4. AUGMENTIN [Concomitant]
     Indication: COUGH
     Dosage: 2 G, UNK
     Route: 048
     Dates: start: 20130207, end: 20130217
  5. AUGMENTIN [Concomitant]
     Indication: C-REACTIVE PROTEIN INCREASED
  6. IMODIUM [Concomitant]
     Indication: DIARRHOEA
     Dosage: UNK UNK, PRN
     Route: 048
     Dates: start: 20130211
  7. PANTOZOL [Concomitant]
     Indication: PROPHYLAXIS
     Dosage: UNK UNK, QD
     Route: 048
     Dates: start: 20130216
  8. FRAGMIN [Concomitant]
     Indication: THROMBOSIS PROPHYLAXIS
     Dosage: UNK UNK, QD
     Route: 058
     Dates: start: 20130216
  9. PRIMPERAN [Concomitant]
     Indication: GASTROINTESTINAL DISORDER
     Dosage: UNK UNK, PRN
     Route: 048
     Dates: start: 20130201
  10. PRIMPERAN [Concomitant]
     Indication: NAUSEA
  11. CITALOPRAM [Concomitant]
     Dosage: 20MG
     Route: 048
     Dates: start: 20130223, end: 20130224
  12. LAXATIVES [Concomitant]
     Indication: CONSTIPATION
     Dosage: 15 DEPS PRN
     Route: 048
     Dates: start: 20130223
  13. FRESUBIN [Concomitant]
     Dosage: ONCE DAILY
     Route: 048
     Dates: start: 20130223

REACTIONS (2)
  - Dehydration [Recovered/Resolved]
  - General physical health deterioration [Recovered/Resolved]
